FAERS Safety Report 14324550 (Version 7)
Quarter: 2020Q3

REPORT INFORMATION
  Report Type: Spontaneous
  Country: GR (occurrence: GR)
  Receive Date: 20171226
  Receipt Date: 20200724
  Transmission Date: 20201102
  Serious: Yes (Life-Threatening, Hospitalization, Disabling, Other)
  Sender: FDA-Public Use
  Company Number: GR-MYLANLABS-2017M1077734

PATIENT
  Age: 79 Year
  Sex: Female

DRUGS (8)
  1. FUCIDIN (FUSIDIC ACID) [Interacting]
     Active Substance: FUSIDIC ACID
     Dosage: 250 MILLIGRAM, Q4D
     Route: 065
  2. FUCIDIN (FUSIDIC ACID) [Interacting]
     Active Substance: FUSIDIC ACID
     Indication: DERMATITIS
     Dosage: 250 MG, QD
     Route: 065
  3. FUCIDIN (FUSIDIC ACID) [Interacting]
     Active Substance: FUSIDIC ACID
     Indication: SKIN BACTERIAL INFECTION
     Dosage: 1000 MG, QD
     Route: 065
  4. FUCIDIN (FUSIDIC ACID) [Interacting]
     Active Substance: FUSIDIC ACID
     Dosage: UNK
     Route: 065
  5. CLINDAMYCIN. [Concomitant]
     Active Substance: CLINDAMYCIN
     Indication: DERMATITIS
     Dosage: 900 MILLIGRAM, QD
     Route: 065
  6. CLINDAMYCIN. [Concomitant]
     Active Substance: CLINDAMYCIN
     Indication: SKIN BACTERIAL INFECTION
     Dosage: 300 MG, 3X/DAY
  7. CLINDAMYCIN. [Concomitant]
     Active Substance: CLINDAMYCIN
     Dosage: 300 MILLIGRAM, QD
     Route: 065
  8. ATORVASTATIN [Suspect]
     Active Substance: ATORVASTATIN
     Indication: DYSLIPIDAEMIA
     Dosage: 20 MG, QD
     Route: 065

REACTIONS (6)
  - Gait disturbance [Recovered/Resolved]
  - Myoglobinuria [Recovered/Resolved]
  - Drug interaction [Recovered/Resolved]
  - Myalgia [Recovered/Resolved]
  - Muscular weakness [Recovered/Resolved]
  - Rhabdomyolysis [Recovered/Resolved]

NARRATIVE: CASE EVENT DATE: 20160921
